FAERS Safety Report 10045028 (Version 2)
Quarter: 2014Q2

REPORT INFORMATION
  Report Type: Spontaneous
  Country: IT (occurrence: IT)
  Receive Date: 20140328
  Receipt Date: 20140414
  Transmission Date: 20141212
  Serious: Yes (Other)
  Sender: FDA-Public Use
  Company Number: IT-ABBVIE-14K-083-1216922-00

PATIENT
  Age: 72 Year
  Sex: Male

DRUGS (3)
  1. VALPROATE SODIUM [Suspect]
     Indication: HEADACHE
     Route: 048
  2. SERENASE [Suspect]
     Indication: HEADACHE
     Route: 048
  3. VALIUM [Suspect]
     Indication: HEADACHE
     Route: 048

REACTIONS (2)
  - Cognitive disorder [Recovering/Resolving]
  - Hypokinesia [Recovering/Resolving]
